FAERS Safety Report 14280251 (Version 5)
Quarter: 2022Q3

REPORT INFORMATION
  Report Type: Report from Study
  Country: GB (occurrence: GB)
  Receive Date: 20171213
  Receipt Date: 20220929
  Transmission Date: 20221026
  Serious: Yes (Hospitalization)
  Sender: FDA-Public Use
  Company Number: GB-SHIRE-GB201730198

PATIENT
  Age: 2 Year
  Sex: Male

DRUGS (21)
  1. IDURSULFASE [Suspect]
     Active Substance: IDURSULFASE
     Indication: Mucopolysaccharidosis II
     Dosage: 0.41 MG/KG, 1X/WEEK
     Route: 042
     Dates: start: 20160817, end: 20181212
  2. IDURSULFASE [Suspect]
     Active Substance: IDURSULFASE
     Dosage: 0.3 MILLIGRAM/KILOGRAM, 1/WEEK
     Route: 042
     Dates: start: 20181213
  3. IDURSULFASE [Suspect]
     Active Substance: IDURSULFASE
     Dosage: UNK
     Route: 042
  4. IDURSULFASE [Suspect]
     Active Substance: IDURSULFASE
     Dosage: UNK
     Route: 042
  5. HYDROCORTISONE [Concomitant]
     Active Substance: HYDROCORTISONE
     Indication: Infusion related reaction
     Dosage: UNK
     Route: 042
     Dates: start: 20161019, end: 20161019
  6. HYDROCORTISONE [Concomitant]
     Active Substance: HYDROCORTISONE
     Indication: Premedication
     Dosage: UNK
     Route: 042
     Dates: start: 20161026
  7. SYTRON [Concomitant]
     Indication: Iron deficiency
     Dosage: UNK
     Route: 048
     Dates: start: 201709, end: 201710
  8. DICLOFENAC [Concomitant]
     Active Substance: DICLOFENAC
     Indication: Musculoskeletal discomfort
     Dosage: UNK
     Route: 065
     Dates: start: 201807
  9. CHLORPHENIRAMINE MALEATE [Concomitant]
     Active Substance: CHLORPHENIRAMINE MALEATE
     Indication: Premedication
     Dosage: UNK
     Route: 042
     Dates: start: 20160930
  10. CHLORPHENIRAMINE MALEATE [Concomitant]
     Active Substance: CHLORPHENIRAMINE MALEATE
     Indication: Infusion related reaction
     Dosage: UNK
     Route: 042
     Dates: start: 20161019, end: 20161019
  11. CHLORPHENIRAMINE MALEATE [Concomitant]
     Active Substance: CHLORPHENIRAMINE MALEATE
     Dosage: UNK
     Route: 042
     Dates: start: 20161109, end: 20161207
  12. MELATONIN [Concomitant]
     Active Substance: MELATONIN
     Indication: Insomnia
     Dosage: UNK
     Route: 048
     Dates: start: 20160824
  13. IBUPROFEN [Concomitant]
     Active Substance: IBUPROFEN
     Indication: Infusion related reaction
     Dosage: UNK
     Route: 048
     Dates: start: 20161019, end: 20161019
  14. IBUPROFEN [Concomitant]
     Active Substance: IBUPROFEN
     Indication: Pyrexia
     Dosage: UNK
     Route: 048
     Dates: start: 20161026, end: 20161026
  15. PREDNISOLONE [Concomitant]
     Active Substance: PREDNISOLONE
     Indication: Premedication
     Dosage: UNK
     Route: 048
     Dates: start: 20161025, end: 20170905
  16. CETIRIZINE [Concomitant]
     Active Substance: CETIRIZINE HYDROCHLORIDE
     Indication: Premedication
     Dosage: UNK
     Route: 048
     Dates: start: 20160817, end: 20160902
  17. ACETAMINOPHEN [Concomitant]
     Active Substance: ACETAMINOPHEN
     Indication: Premedication
     Dosage: UNK
     Route: 048
     Dates: start: 20160817, end: 20160921
  18. ACETAMINOPHEN [Concomitant]
     Active Substance: ACETAMINOPHEN
     Dosage: UNK
     Route: 048
     Dates: start: 20170309
  19. RANITIDINE [Concomitant]
     Active Substance: RANITIDINE
     Indication: Infusion related reaction
     Dosage: UNK
     Route: 042
     Dates: start: 20161019, end: 20161019
  20. RANITIDINE [Concomitant]
     Active Substance: RANITIDINE
     Dosage: UNK
     Route: 042
     Dates: start: 20161026
  21. OMEPRAZOLE [Concomitant]
     Active Substance: OMEPRAZOLE
     Indication: Product used for unknown indication
     Dosage: UNK
     Route: 054
     Dates: start: 201807

REACTIONS (4)
  - Central venous catheterisation [Recovered/Resolved]
  - Flushing [Recovered/Resolved]
  - Lip swelling [Recovered/Resolved]
  - Swelling of eyelid [Recovered/Resolved]

NARRATIVE: CASE EVENT DATE: 20161019
